FAERS Safety Report 13811175 (Version 1)
Quarter: 2017Q3

REPORT INFORMATION
  Report Type: Spontaneous
  Country: US (occurrence: US)
  Receive Date: 20170728
  Receipt Date: 20170728
  Transmission Date: 20171127
  Serious: No
  Sender: FDA-Public Use
  Company Number: US-ROCHE-736638

PATIENT
  Age: 84 Year
  Sex: Female
  Weight: 81.6 kg

DRUGS (2)
  1. BONIVA [Suspect]
     Active Substance: IBANDRONATE SODIUM
     Indication: OSTEOPOROSIS
     Dosage: FREQUENCY: ONCE, ROUTE: INTRAVENOUS
     Route: 050
  2. BONIVA [Suspect]
     Active Substance: IBANDRONATE SODIUM
     Dosage: ROUTE: SUBCUTANEOUS
     Route: 050

REACTIONS (8)
  - Tenderness [Unknown]
  - Injection site extravasation [Recovered/Resolved]
  - Necrosis [Recovered/Resolved]
  - Alopecia [Unknown]
  - Wrong technique in product usage process [Unknown]
  - Hair disorder [Unknown]
  - Mass [Unknown]
  - Hair texture abnormal [Unknown]

NARRATIVE: CASE EVENT DATE: 201007
